FAERS Safety Report 6151301-0 (Version None)
Quarter: 2009Q2

REPORT INFORMATION
  Report Type: 
  Country: None (occurrence: None)
  Receive Date: 20090410
  Receipt Date: 20090331
  Transmission Date: 20091009
  Serious: Yes (Hospitalization)
  Sender: FDA-Public Use
  Company Number: PHHY2009GB11977

PATIENT
  Sex: Male

DRUGS (1)
  1. CLOZARIL [Suspect]
     Indication: SCHIZOPHRENIA
     Dosage: UNK
     Dates: start: 20011218

REACTIONS (12)
  - ANXIETY [None]
  - DIALYSIS [None]
  - HAEMATOCRIT DECREASED [None]
  - HAEMOGLOBIN DECREASED [None]
  - MALAISE [None]
  - MEAN CELL HAEMOGLOBIN INCREASED [None]
  - MENTAL DISORDER [None]
  - NEUTROPHIL COUNT DECREASED [None]
  - OVERDOSE [None]
  - PAIN [None]
  - PERITONITIS [None]
  - RED BLOOD CELL COUNT DECREASED [None]
